FAERS Safety Report 25610953 (Version 1)
Quarter: 2025Q3

REPORT INFORMATION
  Report Type: Spontaneous
  Country: JP (occurrence: JP)
  Receive Date: 20250728
  Receipt Date: 20250728
  Transmission Date: 20251020
  Serious: Yes (Hospitalization)
  Sender: ROCHE
  Company Number: JP-ROCHE-10000346068

PATIENT
  Age: 74 Year
  Sex: Male

DRUGS (9)
  1. BEVACIZUMAB [Suspect]
     Active Substance: BEVACIZUMAB
     Indication: Colon cancer
     Route: 065
  2. TIPIRACIL HYDROCHLORIDE\TRIFLURIDINE [Suspect]
     Active Substance: TIPIRACIL HYDROCHLORIDE\TRIFLURIDINE
     Indication: Colon cancer
     Route: 065
  3. FUROSEMIDE [Concomitant]
     Active Substance: FUROSEMIDE
  4. EDOXABAN [Concomitant]
     Active Substance: EDOXABAN
  5. VONOPRAZAN [Concomitant]
     Active Substance: VONOPRAZAN
  6. SITAGLIPTIN [Concomitant]
     Active Substance: SITAGLIPTIN
  7. LEVOTHYROXINE [Concomitant]
     Active Substance: LEVOTHYROXINE
  8. PEMAFIBRATE [Concomitant]
     Active Substance: PEMAFIBRATE
  9. BROTIZOLAM [Concomitant]
     Active Substance: BROTIZOLAM

REACTIONS (3)
  - Nephrotic syndrome [Recovering/Resolving]
  - IgA nephropathy [Recovering/Resolving]
  - Glomerular vascular disorder [Recovering/Resolving]
